FAERS Safety Report 10080788 (Version 1)
Quarter: 2014Q2

REPORT INFORMATION
  Report Type: Spontaneous
  Country: US (occurrence: None)
  Receive Date: 20140415
  Receipt Date: 20140415
  Transmission Date: 20141212
  Serious: Yes (Other)
  Sender: FDA-Public Use
  Company Number: None

PATIENT
  Sex: Female
  Weight: 48.99 kg

DRUGS (9)
  1. METOPROLOL ER 50MG LEGACY [Suspect]
     Indication: HYPERTENSION
     Dosage: ONE PO DAILY
     Route: 048
  2. METOPROLOL ER 50MG LEGACY [Suspect]
     Indication: CARDIOMYOPATHY
     Dosage: ONE PO DAILY
     Route: 048
  3. ASPIRIN [Concomitant]
  4. COUMADIN [Concomitant]
  5. LASIX [Concomitant]
  6. SPIRONILACTION [Concomitant]
  7. OMEPRAZOLE [Concomitant]
  8. ATACAND [Concomitant]
  9. ALPRAZOLAM [Concomitant]

REACTIONS (2)
  - Palpitations [None]
  - Abdominal discomfort [None]
